FAERS Safety Report 9571605 (Version 1)
Quarter: 2013Q4

REPORT INFORMATION
  Report Type: Spontaneous
  Country: GB (occurrence: GB)
  Receive Date: 20131001
  Receipt Date: 20131001
  Transmission Date: 20140711
  Serious: Yes (Disabling)
  Sender: FDA-Public Use
  Company Number: GB-009507513-1309GBR014032

PATIENT
  Age: 54 Year
  Sex: Male
  Weight: 85.4 kg

DRUGS (10)
  1. ALENDRONATE SODIUM [Suspect]
     Dosage: 70 MG, QW
     Route: 048
     Dates: start: 201112, end: 201307
  2. ASPIRIN [Concomitant]
     Dosage: 75 MG, UNK
  3. ATORVASTATIN [Concomitant]
     Dosage: 80 MG, UNK
  4. BISOPROLOL [Concomitant]
     Dosage: 5 MG, UNK
  5. CLOPIDOGREL [Concomitant]
     Dosage: 75 MG, UNK
  6. SULFAMETHOXAZOLE (+) TRIMETHOPRIM [Concomitant]
     Dosage: 480 MG, UNK
  7. MYCOPHENOLATE MOFETIL [Concomitant]
     Dosage: 1.5 G, UNK
  8. OMEPRAZOLE [Concomitant]
     Dosage: 40 MG, UNK
  9. ACETAMINOPHEN [Concomitant]
  10. PREDNISOLONE [Concomitant]
     Dosage: 5 MG, UNK

REACTIONS (1)
  - Visual impairment [Recovered/Resolved]
